FAERS Safety Report 5645475-5 (Version None)
Quarter: 2008Q1

REPORT INFORMATION
  Report Type: 
  Country: None (occurrence: None)
  Receive Date: 20080229
  Receipt Date: 20070911
  Transmission Date: 20080703
  Serious: No
  Sender: FDA-Public Use
  Company Number: US-BRISTOL-MYERS SQUIBB COMPANY-13904354

PATIENT
  Age: 71 Year
  Sex: Female
  Weight: 70 kg

DRUGS (2)
  1. TAXOL [Suspect]
     Indication: BREAST CANCER
     Dosage: THE PATIENT RECEIVED PACLITAXEL ON 18-JUL-2007, 01-AUG-2007, 15-AUG-2007 AND 29-AUG-2007.
     Dates: start: 20070718, end: 20070829
  2. DARVOCET [Concomitant]

REACTIONS (1)
  - PRURITUS [None]
